FAERS Safety Report 9424475 (Version 1)
Quarter: 2013Q3

REPORT INFORMATION
  Report Type: Spontaneous
  Country: US (occurrence: None)
  Receive Date: 20130725
  Receipt Date: 20130725
  Transmission Date: 20140515
  Serious: Yes (Hospitalization, Other)
  Sender: FDA-Public Use
  Company Number: AUR-APL-2013-06124

PATIENT
  Age: 55 Year
  Sex: Male
  Weight: 79.82 kg

DRUGS (8)
  1. LISINOPRIL [Suspect]
     Indication: HYPERTENSION
  2. XANAX (ALPRAZOLAM) [Suspect]
     Indication: PANIC ATTACK
     Dosage: 1.5MG (0.5MG, 3 IN 1D)
     Dates: start: 1994
  3. CELEBREX (CELECOXIB) [Suspect]
     Indication: ARTHRITIS
     Dosage: (1 IN 1 D)
     Dates: start: 200205, end: 2002
  4. NEURONTIN (GABAPENTIN) [Suspect]
     Indication: PARAESTHESIA
     Dates: start: 2002, end: 201306
  5. LYRICA (PREGABALIN) [Suspect]
     Indication: PARAESTHESIA
     Dosage: (100MG, 1 D)
     Dates: start: 20130620, end: 20130622
  6. DETROL [Suspect]
     Indication: BLADDER DISORDER
     Dosage: 6MG (2MG, 3 IN 1 D)
  7. EFFEXOR XR (VENLAFAXINE HYDROCHLORIDE) (75 MILLIGRAM, CAPSULE) (VENLAFAXINE HYDROCHLORIDE) [Suspect]
     Indication: DEPRESSION
     Dosage: 112.5MG (37.5MG, 3 IN 1
     Dates: start: 1994
  8. CIPRO [Suspect]
     Indication: PRODUCT USED FOR UNKNOWN INDICATION

REACTIONS (32)
  - Cerebrovascular accident [None]
  - Procedural complication [None]
  - Asthenia [None]
  - Loss of consciousness [None]
  - Road traffic accident [None]
  - Traumatic shock [None]
  - Thermal burn [None]
  - Skin graft [None]
  - Splenic rupture [None]
  - Haemorrhage [None]
  - Loss of consciousness [None]
  - Panic attack [None]
  - Bladder dysfunction [None]
  - Urinary retention [None]
  - Blood urine [None]
  - Burning sensation [None]
  - Social avoidant behaviour [None]
  - Depression [None]
  - Anxiety [None]
  - Drug ineffective [None]
  - Drug administration error [None]
  - Urinary tract infection [None]
  - Bladder cancer [None]
  - Medical device complication [None]
  - Procedural haemorrhage [None]
  - Dyspepsia [None]
  - Hyperchlorhydria [None]
  - Fear [None]
  - Headache [None]
  - Hyperhidrosis [None]
  - Tremor [None]
  - Suicidal ideation [None]
